FAERS Safety Report 23677842 (Version 1)
Quarter: 2024Q1

REPORT INFORMATION
  Report Type: Report from Study
  Country: US (occurrence: US)
  Receive Date: 20240327
  Receipt Date: 20240327
  Transmission Date: 20240410
  Serious: Yes (Other)
  Sender: FDA-Public Use
  Company Number: US-ABBVIE-5681865

PATIENT
  Age: 61 Year
  Sex: Male

DRUGS (2)
  1. HUMIRA [Suspect]
     Active Substance: ADALIMUMAB
     Indication: Rheumatoid arthritis
     Dosage: CITRATE FREE, FORM STRENGTH: 40 MILLIGRAM
     Route: 058
     Dates: start: 20231024
  2. HUMIRA [Suspect]
     Active Substance: ADALIMUMAB
     Dosage: CITRATE FREE, FORM STRENGTH: 40 MILLIGRAM
     Route: 058

REACTIONS (12)
  - Influenza [Recovered/Resolved]
  - Chest pain [Not Recovered/Not Resolved]
  - Blood pressure decreased [Unknown]
  - Fall [Unknown]
  - Sepsis [Recovering/Resolving]
  - Pneumonia [Recovering/Resolving]
  - Computerised tomogram abnormal [Not Recovered/Not Resolved]
  - Blood pressure fluctuation [Unknown]
  - Throat clearing [Not Recovered/Not Resolved]
  - Back injury [Recovering/Resolving]
  - Neoplasm malignant [Unknown]
  - Bone disorder [Unknown]

NARRATIVE: CASE EVENT DATE: 20240213
